FAERS Safety Report 14337318 (Version 1)
Quarter: 2017Q4

REPORT INFORMATION
  Report Type: Spontaneous
  Country: CA (occurrence: CA)
  Receive Date: 20171229
  Receipt Date: 20171229
  Transmission Date: 20180321
  Serious: Yes (Death)
  Sender: FDA-Public Use
  Company Number: CA-JNJFOC-20171235801

PATIENT
  Age: 51 Year
  Sex: Female

DRUGS (9)
  1. METFORMIN [Concomitant]
     Active Substance: METFORMIN HYDROCHLORIDE
     Indication: TYPE 2 DIABETES MELLITUS
     Route: 065
  2. NORVASC [Concomitant]
     Active Substance: AMLODIPINE BESYLATE
     Dosage: STRENGTH 10 MG
     Route: 065
  3. REMERON RD [Concomitant]
     Active Substance: MIRTAZAPINE
     Dosage: ORALLY DISINTEGRATING
     Route: 048
  4. HYDROCHLOROTHIAZIDE. [Concomitant]
     Active Substance: HYDROCHLOROTHIAZIDE
     Route: 065
  5. COMBIGAN [Concomitant]
     Active Substance: BRIMONIDINE TARTRATE\TIMOLOL MALEATE
     Route: 047
  6. INVOKANA [Suspect]
     Active Substance: CANAGLIFLOZIN
     Indication: TYPE 2 DIABETES MELLITUS
     Route: 048
  7. CRESTOR [Concomitant]
     Active Substance: ROSUVASTATIN CALCIUM
     Dosage: STRENGTH 20 MG
     Route: 065
  8. ATACAND [Concomitant]
     Active Substance: CANDESARTAN CILEXETIL
     Dosage: STRENGTH 8 MG
     Route: 065
  9. COVERSYL [Concomitant]
     Active Substance: PERINDOPRIL
     Route: 065

REACTIONS (1)
  - Sudden death [Fatal]
